FAERS Safety Report 8914056 (Version 1)
Quarter: 2012Q4

REPORT INFORMATION
  Report Type: Spontaneous
  Country: US (occurrence: None)
  Receive Date: 20121115
  Receipt Date: 20121115
  Transmission Date: 20130627
  Serious: Yes (Life-Threatening, Hospitalization, Disabling)
  Sender: FDA-Public Use
  Company Number: None

PATIENT
  Age: 26 Year
  Sex: Female
  Weight: 73.48 kg

DRUGS (1)
  1. ETONOGESTREL IMPLANT 68MG MERCK [Suspect]
     Indication: BIRTH CONTROL
     Route: 023

REACTIONS (1)
  - Pregnancy with implant contraceptive [None]
